FAERS Safety Report 14761863 (Version 1)
Quarter: 2018Q2

REPORT INFORMATION
  Report Type: Spontaneous
  Country: US (occurrence: US)
  Receive Date: 20180416
  Receipt Date: 20180416
  Transmission Date: 20180711
  Serious: No
  Sender: FDA-Public Use
  Company Number: US-JNJFOC-20180337683

PATIENT
  Age: 18 Month
  Sex: Female
  Weight: 10.89 kg

DRUGS (2)
  1. MOTRIN [Suspect]
     Active Substance: IBUPROFEN
     Indication: PYREXIA
     Route: 048
     Dates: start: 20180314, end: 20180314
  2. MOTRIN [Suspect]
     Active Substance: IBUPROFEN
     Indication: NASOPHARYNGITIS
     Route: 048
     Dates: start: 20180314, end: 20180314

REACTIONS (1)
  - Expired product administered [Unknown]

NARRATIVE: CASE EVENT DATE: 20180314
